FAERS Safety Report 13725802 (Version 2)
Quarter: 2017Q3

REPORT INFORMATION
  Report Type: Spontaneous
  Country: US (occurrence: US)
  Receive Date: 20170706
  Receipt Date: 20170726
  Transmission Date: 20171127
  Serious: No
  Sender: FDA-Public Use
  Company Number: US-PFIZER INC-2017289454

PATIENT
  Age: 74 Year
  Sex: Female

DRUGS (23)
  1. METHOTREXATE SODIUM. [Suspect]
     Active Substance: METHOTREXATE SODIUM
     Indication: RHEUMATOID ARTHRITIS
     Dosage: 7.5 MG, WEEKLY [TAKE 3 TABLETS BY MOUTH ONCE WEEKLY AS DIRECTED ]
     Route: 048
     Dates: start: 200705
  2. PRILOSEC [Concomitant]
     Active Substance: OMEPRAZOLE MAGNESIUM
     Dosage: 20 MG, DAILY
     Route: 048
  3. ZEBETA [Concomitant]
     Active Substance: BISOPROLOL FUMARATE
     Dosage: 5 MG, DAILY
     Route: 048
  4. METHOTREXATE SODIUM. [Suspect]
     Active Substance: METHOTREXATE SODIUM
     Dosage: UNK
     Dates: start: 201210
  5. HYDROCODONE [Concomitant]
     Active Substance: HYDROCODONE
     Dosage: 1 DF, DAILY [ONE PILL DAILY]
  6. NAPROSYN [Concomitant]
     Active Substance: NAPROXEN
     Indication: ARTHRALGIA
     Dosage: 500 MG, AS NEEDED [EACH MORNING AND EVENING]
     Route: 048
  7. ZANAFLEX [Concomitant]
     Active Substance: TIZANIDINE HYDROCHLORIDE
     Dosage: 2 MG, AS NEEDED [TAKE 0.5 TABLETS (2 MG TOTAL) BY MOUTH EVERY 6 (SIX) HOURS]
     Route: 048
  8. REMICADE [Concomitant]
     Active Substance: INFLIXIMAB
     Dosage: 600 MG, UNK [EVERY 6 WEEKS]
  9. FOLVITE [Concomitant]
     Active Substance: FOLIC ACID
     Dosage: 800 UG, DAILY [TWO DAILY]
  10. NORCO [Concomitant]
     Active Substance: ACETAMINOPHEN\HYDROCODONE BITARTRATE
     Dosage: 1 DF, AS NEEDED [HYDROCODONE BITARTRATE 5 MG, PARACETAMOL 325 MG]
     Route: 048
  11. LACTOBACILLUS ACIDOPHILUS [Concomitant]
     Active Substance: LACTOBACILLUS ACIDOPHILUS
     Dosage: 1 MG, DAILY [TAKE ONE BY MOUTH EVERY DAY]
     Route: 048
  12. XELJANZ [Concomitant]
     Active Substance: TOFACITINIB CITRATE
     Dosage: 1 DF, 1X/DAY
  13. DELTASONE [Concomitant]
     Active Substance: PREDNISONE
     Dosage: 10 MG, DAILY
     Route: 048
     Dates: start: 20170509
  14. METHOTREXATE SODIUM. [Suspect]
     Active Substance: METHOTREXATE SODIUM
     Dosage: UNK
  15. NEURONTIN [Concomitant]
     Active Substance: GABAPENTIN
     Dosage: 600 MG, 1X/DAY [TAKE TWO CAPSULES, AT BEDTIME]
     Route: 048
  16. PREDNISONE. [Concomitant]
     Active Substance: PREDNISONE
     Indication: ARTHRITIS
     Dosage: 1 DF, DAILY
  17. VITAMIN D3 [Concomitant]
     Active Substance: CHOLECALCIFEROL
     Dosage: 1000 IU, DAILY
     Route: 048
  18. HYDRODIURIL [Concomitant]
     Active Substance: HYDROCHLOROTHIAZIDE
     Dosage: 25 MG, DAILY
     Route: 048
  19. PLAQUENIL [Concomitant]
     Active Substance: HYDROXYCHLOROQUINE SULFATE
     Dosage: 200 MG, 2X/DAY
     Route: 048
  20. COZAAR [Concomitant]
     Active Substance: LOSARTAN POTASSIUM
     Dosage: 100 MG, DAILY
     Route: 048
  21. VITAMIN B12 [Concomitant]
     Active Substance: CYANOCOBALAMIN
     Dosage: 1000 UG, DAILY
     Route: 048
  22. MAGNESIUM [Concomitant]
     Active Substance: MAGNESIUM
     Dosage: 250 MG, DAILY
     Route: 048
  23. ZOCOR [Concomitant]
     Active Substance: SIMVASTATIN
     Dosage: 40 MG, DAILY
     Route: 048

REACTIONS (2)
  - Drug ineffective [Unknown]
  - Liver function test increased [Unknown]
